FAERS Safety Report 9679133 (Version 1)
Quarter: 2013Q4

REPORT INFORMATION
  Report Type: Spontaneous
  Country: US (occurrence: US)
  Receive Date: 20131108
  Receipt Date: 20131108
  Transmission Date: 20140711
  Serious: Yes (Death, Hospitalization)
  Sender: FDA-Public Use
  Company Number: PHHY2013US125622

PATIENT
  Age: 42 Year
  Sex: Female

DRUGS (1)
  1. PARACETAMOL [Suspect]

REACTIONS (7)
  - Circulatory collapse [Fatal]
  - Acute hepatic failure [Unknown]
  - Mental status changes [Unknown]
  - Brain oedema [Unknown]
  - Hepatic encephalopathy [Unknown]
  - Intracranial pressure increased [Unknown]
  - Toxicity to various agents [Unknown]
